FAERS Safety Report 8575105-4 (Version None)
Quarter: 2012Q2

REPORT INFORMATION
  Report Type: 
  Country: None (occurrence: None)
  Receive Date: 20120423
  Receipt Date: 20100511
  Transmission Date: 20120825
  Serious: Yes (Other)
  Sender: FDA-Public Use
  Company Number: PHHY2010US30920

PATIENT
  Sex: Female

DRUGS (9)
  1. HYZAAR [Concomitant]
  2. COZAAR [Concomitant]
  3. FOLIC ACID [Concomitant]
  4. EXJADE [Suspect]
     Indication: THALASSAEMIA
     Dosage: 1000 MG, DAILY
     Dates: start: 20091217
  5. EXJADE [Suspect]
     Indication: IRON OVERLOAD
     Dosage: 1000 MG, DAILY
     Dates: start: 20091217
  6. FOSAMAX [Concomitant]
  7. LABETALOL HCL [Concomitant]
  8. NORVASC [Concomitant]
  9. MULTIVITAMIN [Concomitant]

REACTIONS (1)
  - BLOOD CREATININE INCREASED [None]
